FAERS Safety Report 13577306 (Version 2)
Quarter: 2017Q2

REPORT INFORMATION
  Report Type: Spontaneous
  Country: US (occurrence: US)
  Receive Date: 20170524
  Receipt Date: 20170525
  Transmission Date: 20170830
  Serious: Yes (Hospitalization, Other)
  Sender: FDA-Public Use
  Company Number: US-JAZZ-2017-US-006359

PATIENT
  Sex: Male

DRUGS (1)
  1. XYREM [Suspect]
     Active Substance: SODIUM OXYBATE
     Indication: MOVEMENT DISORDER
     Dosage: 1G, BID
     Route: 048
     Dates: start: 201705

REACTIONS (3)
  - Pre-existing condition improved [Unknown]
  - Brain injury [Unknown]
  - Therapeutic response unexpected [Unknown]
